FAERS Safety Report 7056380-4 (Version None)
Quarter: 2010Q4

REPORT INFORMATION
  Report Type: 
  Country: None (occurrence: None)
  Receive Date: 20101021
  Receipt Date: 20101004
  Transmission Date: 20110411
  Serious: Yes (Hospitalization, Other)
  Sender: FDA-Public Use
  Company Number: PHHY2010US59383

PATIENT
  Sex: Female

DRUGS (3)
  1. EXJADE [Suspect]
     Dosage: 1000 MG, QD
     Route: 048
  2. FOLIC ACID [Concomitant]
     Dosage: 1 MG, QD
     Route: 048
  3. HYDROXYUREA [Concomitant]
     Dosage: 15 MG, QD
     Route: 048

REACTIONS (11)
  - BACTERAEMIA [None]
  - CARDIAC FLUTTER [None]
  - CHEST PAIN [None]
  - DEVICE RELATED SEPSIS [None]
  - DYSPNOEA [None]
  - HEADACHE [None]
  - LEUKOCYTOSIS [None]
  - PAIN [None]
  - PAIN IN EXTREMITY [None]
  - SICKLE CELL ANAEMIA WITH CRISIS [None]
  - STAPHYLOCOCCAL INFECTION [None]
